FAERS Safety Report 8967673 (Version 1)
Quarter: 2012Q4

REPORT INFORMATION
  Report Type: Spontaneous
  Country: US (occurrence: None)
  Receive Date: 20121206
  Receipt Date: 20121206
  Transmission Date: 20130627
  Serious: Yes (Life-Threatening)
  Sender: FDA-Public Use
  Company Number: 100222-000089

PATIENT
  Age: 35 Year
  Sex: Female

DRUGS (4)
  1. MEANINGFUL BEAUTY ANTIOXIDANT DAY CREME SPF 20 [Suspect]
     Dosage: Once daily dermal
     Dates: start: 20101130, end: 20101215
  2. MEANINGFUL BEAUTY CINDY CRAWFORD MAINTENANCE 1PLUS DAILY MOISTURE SPF 20 UVA/UVB [Suspect]
     Dosage: Once daily dermal
     Dates: start: 20101130, end: 20101215
  3. MEANINGFUL BEAUTY MAINTENANCE 1 PF 20 [Suspect]
     Dosage: Once daily dermal
     Dates: start: 20101130, end: 20101215
  4. MEANINGFUL BEAUTY NOS [Suspect]
     Dosage: Once daily dermal
     Dates: start: 20101130, end: 20101215

REACTIONS (3)
  - Urticaria [None]
  - Rash erythematous [None]
  - Tracheal disorder [None]
